FAERS Safety Report 5912723-3 (Version None)
Quarter: 2008Q4

REPORT INFORMATION
  Report Type: 
  Country: None (occurrence: None)
  Receive Date: 20081008
  Receipt Date: 20080926
  Transmission Date: 20090506
  Serious: Yes (Other)
  Sender: FDA-Public Use
  Company Number: ES-ELI_LILLY_AND_COMPANY-ES200810000595

PATIENT
  Age: 39 Year
  Sex: Female

DRUGS (1)
  1. CYMBALTA [Suspect]
     Indication: DEPRESSION
     Dosage: 60 MG, UNKNOWN
     Route: 048
     Dates: start: 20080501, end: 20080502

REACTIONS (5)
  - DIZZINESS [None]
  - NAUSEA [None]
  - NECK PAIN [None]
  - VISION BLURRED [None]
  - VOMITING [None]
